FAERS Safety Report 13739151 (Version 1)
Quarter: 2017Q3

REPORT INFORMATION
  Report Type: Report from Study
  Country: US (occurrence: US)
  Receive Date: 20170710
  Receipt Date: 20170710
  Transmission Date: 20171127
  Serious: No
  Sender: FDA-Public Use
  Company Number: US-SAOL THERAPEUTICS-2017SAO00631

PATIENT
  Age: 66 Year
  Sex: Male

DRUGS (9)
  1. BACLOFEN. [Suspect]
     Active Substance: BACLOFEN
     Route: 037
  2. DILAUDID [Suspect]
     Active Substance: HYDROMORPHONE HYDROCHLORIDE
     Dosage: 0.54991 MG, \DAY
     Route: 037
     Dates: start: 20120529, end: 20120530
  3. DILAUDID [Suspect]
     Active Substance: HYDROMORPHONE HYDROCHLORIDE
     Dosage: 1.45466 MG, \DAY
     Route: 037
     Dates: start: 20120530
  4. DILAUDID [Suspect]
     Active Substance: HYDROMORPHONE HYDROCHLORIDE
     Dosage: 0.90009 UNK, UNK
     Route: 037
     Dates: start: 20120530
  5. BUPIVACAINE. [Suspect]
     Active Substance: BUPIVACAINE
     Dosage: 7.8087 MG, \DAY
     Route: 037
     Dates: start: 20120529, end: 20120530
  6. BUPIVACAINE. [Suspect]
     Active Substance: BUPIVACAINE
     Dosage: 14.2866  MG, \DAY
     Route: 037
     Dates: start: 20120529, end: 20120530
  7. BUPIVACAINE. [Suspect]
     Active Substance: BUPIVACAINE
     Dosage: 20.6562 MG, \DAY
     Dates: start: 20120530
  8. BUPIVACAINE. [Suspect]
     Active Substance: BUPIVACAINE
     Dosage: 12.7813 MG, \DAY
     Route: 037
     Dates: start: 20120530
  9. DILAUDID [Suspect]
     Active Substance: HYDROMORPHONE HYDROCHLORIDE
     Dosage: 1.00610 MG, \DAY
     Route: 037
     Dates: start: 20120529, end: 20120530

REACTIONS (7)
  - Urinary retention [Not Recovered/Not Resolved]
  - Urinary hesitation [Not Recovered/Not Resolved]
  - Hypoaesthesia [Not Recovered/Not Resolved]
  - Balance disorder [Not Recovered/Not Resolved]
  - Somnolence [Not Recovered/Not Resolved]
  - Pain [Not Recovered/Not Resolved]
  - Dizziness [Not Recovered/Not Resolved]

NARRATIVE: CASE EVENT DATE: 20120601
